FAERS Safety Report 8619014-0 (Version None)
Quarter: 2012Q3

REPORT INFORMATION
  Report Type: 
  Country: None (occurrence: None)
  Receive Date: 20120824
  Receipt Date: 20120820
  Transmission Date: 20120928
  Serious: Yes (Hospitalization, Other)
  Sender: FDA-Public Use
  Company Number: PHHY2011CA15725

PATIENT
  Sex: Female

DRUGS (5)
  1. SANDOSTATIN LAR [Suspect]
     Indication: METASTATIC CARCINOID TUMOUR
     Dosage: 40 MG, EVERY 4 WEEKS
     Route: 030
     Dates: start: 20110528
  2. SANDOSTATIN LAR [Suspect]
     Dosage: 30 MG, QMO
     Route: 030
     Dates: start: 20110629
  3. SANDOSTATIN LAR [Suspect]
     Dosage: 40 MG, QMO
     Route: 030
  4. GRAVOL TAB [Concomitant]
     Dosage: UNK UKN, UNK
  5. SANDOSTATIN LAR [Suspect]
     Dosage: 40 MG, QMO
     Route: 030

REACTIONS (32)
  - SYNCOPE [None]
  - ANKLE FRACTURE [None]
  - PAIN IN EXTREMITY [None]
  - MUSCULOSKELETAL PAIN [None]
  - NAUSEA [None]
  - NEOPLASM PROGRESSION [None]
  - BLOOD ELECTROLYTES ABNORMAL [None]
  - FAECES DISCOLOURED [None]
  - AVULSION FRACTURE [None]
  - FEELING COLD [None]
  - NIGHT SWEATS [None]
  - LIMB INJURY [None]
  - INFLUENZA LIKE ILLNESS [None]
  - FLATULENCE [None]
  - HEADACHE [None]
  - CONSTIPATION [None]
  - RHINORRHOEA [None]
  - PAIN [None]
  - PAIN IN JAW [None]
  - ARTHRALGIA [None]
  - DIZZINESS [None]
  - CARDIAC FAILURE [None]
  - BONE DISORDER [None]
  - SWELLING [None]
  - OEDEMA PERIPHERAL [None]
  - RASH [None]
  - INJURY [None]
  - ABDOMINAL PAIN UPPER [None]
  - DIARRHOEA [None]
  - FATIGUE [None]
  - OSTEOARTHRITIS [None]
  - PYREXIA [None]
